FAERS Safety Report 5229257-4 (Version None)
Quarter: 2007Q1

REPORT INFORMATION
  Report Type: 
  Country: None (occurrence: None)
  Receive Date: 20061201
  Receipt Date: 20060804
  Transmission Date: 20070707
  Serious: No
  Sender: FDA-Public Use
  Company Number: US200608001254

PATIENT
  Age: 46 Year
  Sex: Female

DRUGS (4)
  1. CYMBALTA [Suspect]
     Indication: ARTHRITIS
     Dosage: 30 MG DAILY (1/D) ; 60 MG DAILY (1/D) ; 90 MG DAILY (1/D)
     Dates: start: 20060101, end: 20060101
  2. CYMBALTA [Suspect]
     Indication: ARTHRITIS
     Dosage: 30 MG DAILY (1/D) ; 60 MG DAILY (1/D) ; 90 MG DAILY (1/D)
     Dates: start: 20060601, end: 20060101
  3. CYMBALTA [Suspect]
     Indication: ARTHRITIS
     Dosage: 30 MG DAILY (1/D) ; 60 MG DAILY (1/D) ; 90 MG DAILY (1/D)
     Dates: start: 20060101
  4. EFFEXOR [Concomitant]

REACTIONS (2)
  - ERUCTATION [None]
  - FLATULENCE [None]
